FAERS Safety Report 8565590-6 (Version None)
Quarter: 2012Q3

REPORT INFORMATION
  Report Type: 
  Country: None (occurrence: None)
  Receive Date: 20120803
  Receipt Date: 20120731
  Transmission Date: 20120928
  Serious: Yes (Hospitalization, Other)
  Sender: FDA-Public Use
  Company Number: US-PFIZER INC-2011281671

PATIENT
  Sex: Female

DRUGS (10)
  1. PROTONIX [Suspect]
     Indication: GASTRIC DISORDER
     Dosage: 40 MG, 2X/DAY
  2. SIMVASTATIN [Concomitant]
  3. TRILIPIX [Concomitant]
  4. CELEBREX [Suspect]
     Dosage: 200 MG, 1X/DAY
  5. CYMBALTA [Concomitant]
  6. BUPROPION [Concomitant]
  7. XALATAN [Suspect]
     Indication: CATARACT OPERATION
     Dosage: 005% 1 DROP EACH EYE DAILY
  8. JANUVIA [Concomitant]
  9. DOXYCYCLINE [Concomitant]
  10. LOSARTAN [Concomitant]

REACTIONS (3)
  - ARTHROPATHY [None]
  - SURGERY [None]
  - STAPHYLOCOCCAL INFECTION [None]
